FAERS Safety Report 17654797 (Version 1)
Quarter: 2020Q2

REPORT INFORMATION
  Report Type: Spontaneous
  Country: US (occurrence: US)
  Receive Date: 20200410
  Receipt Date: 20200410
  Transmission Date: 20200713
  Serious: No
  Sender: FDA-Public Use
  Company Number: US-ASTRAZENECA-2020SE40542

PATIENT
  Sex: Male
  Weight: 78 kg

DRUGS (4)
  1. ASPIRIN. [Concomitant]
     Active Substance: ASPIRIN
     Indication: STENT PLACEMENT
     Route: 048
     Dates: start: 20191111
  2. LEVOTHYROXINE. [Concomitant]
     Active Substance: LEVOTHYROXINE
     Indication: THYROID DISORDER
     Route: 048
  3. BRILINTA [Suspect]
     Active Substance: TICAGRELOR
     Indication: STENT PLACEMENT
     Route: 048
     Dates: start: 20191111
  4. METOPROLOL SUCCINATE. [Concomitant]
     Active Substance: METOPROLOL SUCCINATE
     Indication: STENT PLACEMENT
     Route: 048
     Dates: start: 20191111

REACTIONS (3)
  - Skin laceration [Unknown]
  - Haemorrhage [Not Recovered/Not Resolved]
  - Increased tendency to bruise [Not Recovered/Not Resolved]
